FAERS Safety Report 9078787 (Version 4)
Quarter: 2013Q3

REPORT INFORMATION
  Report Type: Spontaneous
  Country: US (occurrence: US)
  Receive Date: 20130130
  Receipt Date: 20130812
  Transmission Date: 20140515
  Serious: Yes (Hospitalization, Other)
  Sender: FDA-Public Use
  Company Number: US-009507513-2012SP028053

PATIENT
  Sex: Female
  Weight: 113.38 kg

DRUGS (2)
  1. NUVARING [Suspect]
     Indication: CONTRACEPTION
     Dosage: UNK
     Route: 067
     Dates: start: 200609, end: 20100619
  2. NAPROXEN SODIUM [Concomitant]
     Indication: DYSMENORRHOEA
     Dosage: 440 MG, QM

REACTIONS (10)
  - Syncope [Unknown]
  - Pulmonary embolism [Unknown]
  - Maternal exposure before pregnancy [Unknown]
  - Fall [Unknown]
  - Haemorrhoids [Unknown]
  - Cyst [Unknown]
  - Cyst removal [Unknown]
  - Depression [Unknown]
  - Cervical friability [Unknown]
  - Cervix disorder [Unknown]
